FAERS Safety Report 7069430-6 (Version None)
Quarter: 2010Q4

REPORT INFORMATION
  Report Type: 
  Country: None (occurrence: None)
  Receive Date: 20101028
  Receipt Date: 20101004
  Transmission Date: 20110411
  Serious: No
  Sender: FDA-Public Use
  Company Number: US-BAYER-201029281NA

PATIENT
  Age: 40 Year
  Sex: Female

DRUGS (1)
  1. MAGNEVIST [Suspect]
     Indication: BIOPSY BREAST
     Dosage: TOTAL DAILY DOSE: 20 ML  UNIT DOSE: 100 ML
     Dates: start: 20100727, end: 20100727

REACTIONS (1)
  - NASAL CONGESTION [None]
